FAERS Safety Report 13195478 (Version 1)
Quarter: 2017Q1

REPORT INFORMATION
  Report Type: Spontaneous
  Country: US (occurrence: US)
  Receive Date: 20170208
  Receipt Date: 20170208
  Transmission Date: 20170428
  Serious: Yes (Other)
  Sender: FDA-Public Use
  Company Number: US-JNJCP-30000369212

PATIENT
  Sex: Female
  Weight: 52 kg

DRUGS (12)
  1. CO-Q10 [Concomitant]
     Indication: ROUTINE HEALTH MAINTENANCE
     Dosage: ONE PER DAY
  2. LOVASTATIN. [Concomitant]
     Active Substance: LOVASTATIN
     Indication: BLOOD CHOLESTEROL INCREASED
     Dosage: ONE PER DAY
  3. VITAMIN D3 [Concomitant]
     Active Substance: CHOLECALCIFEROL
     Indication: ROUTINE HEALTH MAINTENANCE
     Dosage: ONE PER DAY
  4. AVEENO ACTIVE NATURALS SMART ESSENTIALS DAILY NOURISHING MOISTURIZER SPF 30 [Suspect]
     Active Substance: AVOBENZONE\HOMOSALATE\OCTISALATE\OCTOCRYLENE\OXYBENZONE
     Indication: DRY SKIN PROPHYLAXIS
     Dosage: THREE PUMPS DAILY
     Route: 061
  5. BIOTIN [Concomitant]
     Active Substance: BIOTIN
     Indication: ROUTINE HEALTH MAINTENANCE
     Dosage: ONE PER DAY
  6. MAGNESIUM [Concomitant]
     Active Substance: MAGNESIUM
     Indication: ROUTINE HEALTH MAINTENANCE
     Dosage: ONE PER DAY
  7. TUMS [Concomitant]
     Active Substance: CALCIUM CARBONATE
     Dosage: ONE PER DAY
  8. 81 MG ASPIRIN [Concomitant]
     Indication: PRODUCT USED FOR UNKNOWN INDICATION
     Dosage: EVERY OTHER DAY
  9. CENTRUM SILVER [Concomitant]
     Active Substance: MINERALS\VITAMINS
     Indication: ROUTINE HEALTH MAINTENANCE
     Dosage: ONE PER DAY
  10. AVEENO ACTIVE NATURALS SMART ESSENTIALS DAILY NOURISHING MOISTURIZER SPF 30 [Suspect]
     Active Substance: AVOBENZONE\HOMOSALATE\OCTISALATE\OCTOCRYLENE\OXYBENZONE
     Indication: DRY SKIN PROPHYLAXIS
     Dosage: THREE PUMPS DAILY
     Route: 061
     Dates: end: 20170119
  11. ALENDRONATE [Concomitant]
     Active Substance: ALENDRONATE SODIUM
     Indication: OSTEOPOROSIS
     Dosage: ONE PER DAY
  12. FLAXSEED [Concomitant]
     Active Substance: FLAX SEED
     Indication: ROUTINE HEALTH MAINTENANCE
     Dosage: ONE PER DAY

REACTIONS (3)
  - Breast cancer [Unknown]
  - Product label issue [Unknown]
  - Expired product administered [Unknown]

NARRATIVE: CASE EVENT DATE: 201612
